FAERS Safety Report 22882402 (Version 3)
Quarter: 2023Q4

REPORT INFORMATION
  Report Type: Spontaneous
  Country: US (occurrence: US)
  Receive Date: 20230830
  Receipt Date: 20231115
  Transmission Date: 20240110
  Serious: Yes (Other)
  Sender: FDA-Public Use
  Company Number: US-PFIZER INC-202300285875

PATIENT
  Age: 67 Year
  Sex: Male
  Weight: 99.4 kg

DRUGS (1)
  1. HEPARIN SODIUM [Suspect]
     Active Substance: HEPARIN SODIUM
     Indication: Anticoagulant therapy
     Dosage: 7000 IU, 2X/DAY (2.5 HRS INTRAPROCEDURE)
     Route: 042

REACTIONS (1)
  - Drug ineffective [Unknown]
